FAERS Safety Report 20584996 (Version 1)
Quarter: 2022Q1

REPORT INFORMATION
  Report Type: Spontaneous
  Country: US (occurrence: US)
  Receive Date: 20220311
  Receipt Date: 20220311
  Transmission Date: 20220423
  Serious: No
  Sender: FDA-Public Use
  Company Number: US-BRISTOL-MYERS SQUIBB COMPANY-BMS-2022-035931

PATIENT
  Age: 33 Year
  Sex: Male
  Weight: 88.45 kg

DRUGS (12)
  1. KENALOG-40 [Suspect]
     Active Substance: TRIAMCINOLONE ACETONIDE
     Indication: Gout
     Dosage: UNK, SINGLE DOSE
     Route: 065
     Dates: start: 20220225
  2. KENALOG-40 [Suspect]
     Active Substance: TRIAMCINOLONE ACETONIDE
     Indication: Exostosis
  3. KENALOG-40 [Suspect]
     Active Substance: TRIAMCINOLONE ACETONIDE
     Indication: Ligament sprain
  4. KENALOG-40 [Suspect]
     Active Substance: TRIAMCINOLONE ACETONIDE
     Indication: Neuritis
  5. LIDOCAINE [Suspect]
     Active Substance: LIDOCAINE
     Indication: Gout
     Dosage: UNK
     Route: 065
     Dates: start: 20220225
  6. LIDOCAINE [Suspect]
     Active Substance: LIDOCAINE
     Indication: Neuritis
  7. LIDOCAINE [Suspect]
     Active Substance: LIDOCAINE
     Indication: Exostosis
  8. LIDOCAINE [Suspect]
     Active Substance: LIDOCAINE
     Indication: Ligament sprain
  9. MARCAINE [Suspect]
     Active Substance: BUPIVACAINE HYDROCHLORIDE
     Indication: Gout
     Dosage: UNK
     Route: 065
     Dates: start: 20220225
  10. MARCAINE [Suspect]
     Active Substance: BUPIVACAINE HYDROCHLORIDE
     Indication: Neuritis
  11. MARCAINE [Suspect]
     Active Substance: BUPIVACAINE HYDROCHLORIDE
     Indication: Ligament sprain
  12. MARCAINE [Suspect]
     Active Substance: BUPIVACAINE HYDROCHLORIDE
     Indication: Exostosis

REACTIONS (5)
  - Injection site atrophy [Unknown]
  - Skin disorder [Unknown]
  - Injection site discolouration [Unknown]
  - Injection site pain [Unknown]
  - Off label use [Unknown]

NARRATIVE: CASE EVENT DATE: 20220225
